FAERS Safety Report 5691571-6 (Version None)
Quarter: 2008Q2

REPORT INFORMATION
  Report Type: 
  Country: None (occurrence: None)
  Receive Date: 20080402
  Receipt Date: 20050127
  Transmission Date: 20081010
  Serious: Yes (Death)
  Sender: FDA-Public Use
  Company Number: US-ROCHE-393696

PATIENT
  Age: 74 Year
  Sex: Male

DRUGS (1)
  1. DEMADEX [Suspect]
     Indication: FLUID RETENTION
     Dosage: DAILY
     Route: 048

REACTIONS (1)
  - DEATH [None]
